FAERS Safety Report 6361957-5 (Version None)
Quarter: 2009Q3

REPORT INFORMATION
  Report Type: 
  Country: None (occurrence: None)
  Receive Date: 20090821
  Receipt Date: 20090713
  Transmission Date: 20100115
  Serious: No
  Sender: FDA-Public Use
  Company Number: 8049022

PATIENT
  Age: 43 Year
  Sex: Female
  Weight: 77.2 kg

DRUGS (16)
  1. CIMZIA [Suspect]
     Indication: RHEUMATOID ARTHRITIS
     Dosage: 400 MG SC
     Route: 058
     Dates: start: 20090605, end: 20090605
  2. MAGNESIUM [Concomitant]
  3. VITAMIN D [Concomitant]
  4. PREDNISONE TAB [Concomitant]
  5. DIOVAN HCT [Concomitant]
  6. PLAQUENIL [Concomitant]
  7. TOPROL-XL [Concomitant]
  8. NEXIUM [Concomitant]
  9. RECLAST [Concomitant]
  10. POTASSIUM CHLORIDE [Concomitant]
  11. ZANTAC [Concomitant]
  12. CALCIUM [Concomitant]
  13. FISH OIL [Concomitant]
  14. ZYRTEC [Concomitant]
  15. ZOCOR [Concomitant]
  16. ASPIRIN [Concomitant]

REACTIONS (4)
  - BLOOD PRESSURE DIASTOLIC DECREASED [None]
  - LOSS OF CONSCIOUSNESS [None]
  - MALAISE [None]
  - VERTIGO [None]
